FAERS Safety Report 7574590-4 (Version None)
Quarter: 2011Q2

REPORT INFORMATION
  Report Type: 
  Country: None (occurrence: None)
  Receive Date: 20110627
  Receipt Date: 20091226
  Transmission Date: 20111010
  Serious: Yes (Hospitalization, Other)
  Sender: FDA-Public Use
  Company Number: US-BAYER-200943410NA

PATIENT
  Age: 75 Year
  Sex: Male
  Weight: 61 kg

DRUGS (7)
  1. HEPARIN [Concomitant]
     Dosage: 25,000 UNITS
     Route: 042
     Dates: start: 20060331, end: 20060331
  2. TRASYLOL [Suspect]
     Indication: CORONARY ARTERY BYPASS
     Route: 042
     Dates: start: 20060331
  3. ACETYLSALICYLIC ACID SRT [Concomitant]
     Dosage: 81 MG
     Route: 048
  4. MONOPRIL [Concomitant]
     Dosage: 20 MG
     Route: 048
  5. AMICAR [Concomitant]
     Indication: CORONARY ARTERY BYPASS
     Dosage: UNK
     Dates: start: 20060331
  6. PROTAMINE SULFATE [Concomitant]
     Dosage: 310 MG
     Dates: start: 20060331
  7. HYDROCHLOROTHIAZIDE [Concomitant]
     Dosage: 25 MG
     Route: 048

REACTIONS (4)
  - INJURY [None]
  - PAIN [None]
  - UNEVALUABLE EVENT [None]
  - RENAL FAILURE [None]
